FAERS Safety Report 6156833-7 (Version None)
Quarter: 2009Q2

REPORT INFORMATION
  Report Type: 
  Country: None (occurrence: None)
  Receive Date: 20090416
  Receipt Date: 20090413
  Transmission Date: 20091009
  Serious: Yes (Hospitalization)
  Sender: FDA-Public Use
  Company Number: US-BRISTOL-MYERS SQUIBB COMPANY-14570451

PATIENT
  Age: 68 Year
  Sex: Female
  Weight: 108 kg

DRUGS (12)
  1. DASATINIB [Suspect]
     Indication: SARCOMA
     Route: 048
     Dates: start: 20090326, end: 20090328
  2. ACTIGALL [Concomitant]
     Dates: start: 20070201
  3. COLCHICINE [Concomitant]
     Dates: start: 20070201
  4. EFFEXOR [Concomitant]
     Dates: start: 20070201
  5. LISINOPRIL [Concomitant]
     Dates: start: 20070201
  6. NORVASC [Concomitant]
     Dates: start: 20070201
  7. PROCHLORPERAZINE MALEATE [Concomitant]
     Dates: start: 20070201
  8. SPIRIVA [Concomitant]
     Dates: start: 20070201
  9. SYNTHROID [Concomitant]
     Dates: start: 20070201
  10. TRAMADOL [Concomitant]
     Dates: start: 20070201
  11. TRIAZOLAM [Concomitant]
     Dates: start: 20070201
  12. ZOFRAN [Concomitant]
     Dates: start: 20080401

REACTIONS (2)
  - CARDIAC FAILURE CONGESTIVE [None]
  - CHRONIC OBSTRUCTIVE PULMONARY DISEASE [None]
